FAERS Safety Report 9325465 (Version 2)
Quarter: 2013Q3

REPORT INFORMATION
  Report Type: Spontaneous
  Country: SE (occurrence: SE)
  Receive Date: 20130604
  Receipt Date: 20130716
  Transmission Date: 20140515
  Serious: Yes (Hospitalization, Other)
  Sender: FDA-Public Use
  Company Number: SE-ROCHE-1225978

PATIENT
  Age: 16 Year
  Sex: Female
  Weight: 63 kg

DRUGS (8)
  1. MABTHERA [Suspect]
     Indication: SYSTEMIC LUPUS ERYTHEMATOSUS
     Route: 042
     Dates: start: 20130410
  2. MABTHERA [Suspect]
     Indication: OFF LABEL USE
     Route: 042
     Dates: start: 20130516
  3. MABTHERA [Suspect]
     Route: 042
     Dates: start: 20130528
  4. MABTHERA [Suspect]
     Route: 042
     Dates: start: 20130604
  5. PREDNISOLONE [Concomitant]
     Indication: NEPHROTIC SYNDROME
     Route: 065
     Dates: start: 2011
  6. PREDNISOLONE [Concomitant]
     Route: 065
  7. MYCOPHENOLATE MOFETIL [Concomitant]
     Indication: NEPHROTIC SYNDROME
     Route: 065
     Dates: start: 2011
  8. OMEPRAZOL [Concomitant]
     Route: 065

REACTIONS (3)
  - Infusion related reaction [Unknown]
  - Gastroenteritis [Recovered/Resolved]
  - Nephrotic syndrome [Recovered/Resolved]
